FAERS Safety Report 18221730 (Version 2)
Quarter: 2020Q4

REPORT INFORMATION
  Report Type: Spontaneous
  Country: US (occurrence: US)
  Receive Date: 20200902
  Receipt Date: 20201202
  Transmission Date: 20210113
  Serious: No
  Sender: FDA-Public Use
  Company Number: US-DECIPHERA PHARMACEUTICALS LLC-2020-US-000021

PATIENT
  Sex: Female

DRUGS (6)
  1. QINLOCK [Suspect]
     Active Substance: RIPRETINIB
     Indication: GASTROINTESTINAL STROMAL TUMOUR
     Dosage: 150 MILLIGRAM, QD
     Route: 048
     Dates: start: 20200512
  2. QINLOCK [Suspect]
     Active Substance: RIPRETINIB
     Dosage: 50 MILLIGRAM, QD
     Route: 048
  3. QINLOCK [Suspect]
     Active Substance: RIPRETINIB
     Dosage: 150 MILLIGRAM, QD
     Route: 048
     Dates: start: 20200512
  4. QINLOCK [Suspect]
     Active Substance: RIPRETINIB
     Dosage: 1 TO 2 TO 3 TABLETS DAILY
  5. QINLOCK [Suspect]
     Active Substance: RIPRETINIB
     Indication: GASTROINTESTINAL STROMAL TUMOUR
     Dosage: 150 MILLIGRAM, QD
     Route: 048
     Dates: start: 20200715
  6. QINLOCK [Suspect]
     Active Substance: RIPRETINIB
     Dosage: 100 MILLIGRAM, QOD (2 TABLETS)

REACTIONS (13)
  - Urticaria [Recovering/Resolving]
  - Drug intolerance [Unknown]
  - Hair texture abnormal [Unknown]
  - Trigger finger [Unknown]
  - Inappropriate schedule of product administration [Unknown]
  - Pruritus [Unknown]
  - Underdose [Unknown]
  - Product dose omission issue [Unknown]
  - Neuropathy peripheral [Unknown]
  - Palmar-plantar erythrodysaesthesia syndrome [Unknown]
  - Rash [Unknown]
  - Melanocytic naevus [Unknown]
  - Alopecia [Unknown]
